FAERS Safety Report 8170985-9 (Version None)
Quarter: 2012Q1

REPORT INFORMATION
  Report Type: 
  Country: None (occurrence: None)
  Receive Date: 20120104
  Receipt Date: 20111130
  Transmission Date: 20120608
  Serious: No
  Sender: FDA-Public Use
  Company Number: 2011HGS-002560

PATIENT
  Age: 23 Year
  Sex: Female
  Weight: 57.6068 kg

DRUGS (7)
  1. BENLYSTA [Suspect]
     Indication: SYSTEMIC LUPUS ERYTHEMATOSUS
     Dosage: 10 MG/KG, 1 IN 14 D, INTRAVENOUS DRIP
     Route: 041
     Dates: start: 20110906, end: 20110906
  2. ATENOLOL [Concomitant]
  3. LUNESTA [Concomitant]
  4. LYRICA [Concomitant]
  5. ZOLOFT [Concomitant]
  6. LUNESTA (ESZOPICLONE) (ESZOPICLONE) [Concomitant]
  7. PLAQUENIL (HYDROXYCHLOROQUINE SULFATE)(HYDROXYCHLOROQUINE SULFATE) [Concomitant]

REACTIONS (7)
  - INFUSION RELATED REACTION [None]
  - PYREXIA [None]
  - DIARRHOEA [None]
  - PAIN IN EXTREMITY [None]
  - FATIGUE [None]
  - CHILLS [None]
  - INFLUENZA LIKE ILLNESS [None]
